FAERS Safety Report 8784552 (Version 1)
Quarter: 2012Q4

REPORT INFORMATION
  Report Type: Spontaneous
  Country: US (occurrence: None)
  Receive Date: 20120907
  Receipt Date: 20120907
  Transmission Date: 20130627
  Serious: No
  Sender: FDA-Public Use
  Company Number: None

PATIENT
  Age: 82 Year
  Sex: Male

DRUGS (1)
  1. PIPERACILLIN/TAZOBACTAM STRAGEN [Suspect]
     Indication: CELLULITIS
     Route: 042
     Dates: start: 20120904, end: 20120904

REACTIONS (2)
  - Sudden death [None]
  - Infusion related reaction [None]
